FAERS Safety Report 19473300 (Version 2)
Quarter: 2021Q3

REPORT INFORMATION
  Report Type: Spontaneous
  Country: AT (occurrence: AT)
  Receive Date: 20210629
  Receipt Date: 20210806
  Transmission Date: 20211014
  Serious: Yes (Hospitalization, Other)
  Sender: FDA-Public Use
  Company Number: AT-ROCHE-2858952

PATIENT
  Sex: Male

DRUGS (1)
  1. XOLAIR [Suspect]
     Active Substance: OMALIZUMAB
     Indication: ASTHMA
     Route: 065

REACTIONS (6)
  - Nausea [Unknown]
  - Arthralgia [Unknown]
  - Fatigue [Unknown]
  - Vomiting [Unknown]
  - Infectious pleural effusion [Unknown]
  - Pneumonia [Unknown]
